FAERS Safety Report 7502477-1 (Version None)
Quarter: 2011Q2

REPORT INFORMATION
  Report Type: 
  Country: None (occurrence: None)
  Receive Date: 20110525
  Receipt Date: 20110516
  Transmission Date: 20111010
  Serious: Yes (Life-Threatening, Hospitalization, Other)
  Sender: FDA-Public Use
  Company Number: FR-BRISTOL-MYERS SQUIBB COMPANY-15750664

PATIENT
  Age: 79 Year
  Sex: Male

DRUGS (6)
  1. ALLOPURINOL [Suspect]
     Dosage: FOR AT LEAST 2 YEARS
     Route: 048
     Dates: end: 20110422
  2. CORDARONE [Concomitant]
  3. INSULATARD [Concomitant]
  4. IRBESARTAN [Suspect]
     Dosage: FOR AT LEAST 1 YEAR
     Route: 048
     Dates: end: 20110422
  5. LASIX [Suspect]
     Dosage: FOR AT LEAST 1 YEAR
     Route: 048
     Dates: end: 20110422
  6. BISOPROLOL FUMARATE [Concomitant]

REACTIONS (2)
  - VIRAL INFECTION [None]
  - DRUG RASH WITH EOSINOPHILIA AND SYSTEMIC SYMPTOMS [None]
